FAERS Safety Report 13778301 (Version 1)
Quarter: 2017Q3

REPORT INFORMATION
  Report Type: Spontaneous
  Country: US (occurrence: US)
  Receive Date: 20170721
  Receipt Date: 20170721
  Transmission Date: 20171127
  Serious: No
  Sender: FDA-Public Use
  Company Number: US-TEVA-704217USA

PATIENT
  Age: 48 Year
  Sex: Male
  Weight: 77.18 kg

DRUGS (1)
  1. AMPHETAMINE W/DEXTROAMPHETAMINE [Suspect]
     Active Substance: AMPHETAMINE SULFATE\DEXTROAMPHETAMINE
     Indication: ATTENTION DEFICIT/HYPERACTIVITY DISORDER
     Route: 065
     Dates: start: 20160909

REACTIONS (4)
  - Feeling abnormal [Unknown]
  - Drug ineffective [Unknown]
  - Dysgeusia [Unknown]
  - Headache [Unknown]

NARRATIVE: CASE EVENT DATE: 20160909
